FAERS Safety Report 18957033 (Version 1)
Quarter: 2021Q1

REPORT INFORMATION
  Report Type: Spontaneous
  Country: CH (occurrence: CH)
  Receive Date: 20210302
  Receipt Date: 20210302
  Transmission Date: 20210420
  Serious: Yes (Other)
  Sender: FDA-Public Use
  Company Number: CH-TOPROL-2021000030

PATIENT
  Sex: Female

DRUGS (1)
  1. BELOC ZOK [Suspect]
     Active Substance: METOPROLOL SUCCINATE
     Indication: PRODUCT USED FOR UNKNOWN INDICATION
     Dosage: UNK
     Route: 048

REACTIONS (4)
  - Arrhythmia [Recovered/Resolved]
  - Drug ineffective [Recovered/Resolved]
  - Malaise [Unknown]
  - Atrial fibrillation [Recovered/Resolved]
